FAERS Safety Report 7433887-9 (Version None)
Quarter: 2011Q2

REPORT INFORMATION
  Report Type: 
  Country: None (occurrence: None)
  Receive Date: 20110420
  Receipt Date: 20110420
  Transmission Date: 20111010
  Serious: Yes (Hospitalization)
  Sender: FDA-Public Use
  Company Number: None

PATIENT
  Sex: Female
  Weight: 63.5036 kg

DRUGS (1)
  1. VENOFER [Suspect]
     Indication: ANAEMIA
     Dosage: 500 MG ONCE
     Dates: start: 20090411, end: 20110411

REACTIONS (8)
  - NAUSEA [None]
  - ASTHENIA [None]
  - VOMITING [None]
  - DIARRHOEA [None]
  - BURNING SENSATION [None]
  - LOSS OF CONSCIOUSNESS [None]
  - BLOOD PRESSURE DECREASED [None]
  - NASOPHARYNGITIS [None]
